FAERS Safety Report 4608402-5 (Version None)
Quarter: 2005Q1

REPORT INFORMATION
  Report Type: 
  Country: None (occurrence: None)
  Receive Date: 20050311
  Receipt Date: 20050311
  Transmission Date: 20050727
  Serious: Yes (Other)
  Sender: FDA-Public Use
  Company Number: None

PATIENT
  Age: 79 Year
  Sex: Female
  Weight: 58.6 kg

DRUGS (12)
  1. TEQUIN [Suspect]
     Dosage: 400 MG  IV Q24
     Route: 042
     Dates: start: 20041018, end: 20041028
  2. SOLU-MEDROL [Suspect]
     Dosage: DIFFERENT DOSE
     Dates: start: 20041018, end: 20041023
  3. LASIX [Concomitant]
  4. TRIDIL [Concomitant]
  5. ALDACTONE [Concomitant]
  6. ALBUMIN (HUMAN) [Concomitant]
  7. FORADIL [Concomitant]
  8. FLOVENT [Concomitant]
  9. LOVENOX [Concomitant]
  10. AVAPRO [Concomitant]
  11. PEPCID [Concomitant]
  12. SOUMEDROL [Concomitant]

REACTIONS (1)
  - HYPERGLYCAEMIA [None]
